FAERS Safety Report 13312528 (Version 2)
Quarter: 2017Q1

REPORT INFORMATION
  Report Type: Report from Study
  Country: US (occurrence: US)
  Receive Date: 20170309
  Receipt Date: 20170317
  Transmission Date: 20170428
  Serious: Yes (Other)
  Sender: FDA-Public Use
  Company Number: US-ALEXION-A201702157

PATIENT
  Sex: Female

DRUGS (1)
  1. SOLIRIS [Suspect]
     Active Substance: ECULIZUMAB
     Indication: HAEMOLYTIC URAEMIC SYNDROME
     Dosage: 900 MG, UNK
     Route: 042
     Dates: start: 20170222, end: 20170308

REACTIONS (8)
  - Abasia [Unknown]
  - Myositis [Unknown]
  - Fatigue [Unknown]
  - Fluid retention [Unknown]
  - Muscular weakness [Unknown]
  - Dysstasia [Unknown]
  - Blood urea nitrogen/creatinine ratio increased [Unknown]
  - Urine output decreased [Unknown]
